FAERS Safety Report 5391552-6 (Version None)
Quarter: 2007Q3

REPORT INFORMATION
  Report Type: 
  Country: None (occurrence: None)
  Receive Date: 20070719
  Receipt Date: 20070702
  Transmission Date: 20080115
  Serious: Yes (Hospitalization, Other)
  Sender: FDA-Public Use
  Company Number: US-PFIZER INC-2007015485

PATIENT
  Sex: Female
  Weight: 71.2 kg

DRUGS (3)
  1. BEXTRA [Suspect]
     Indication: PAIN
     Route: 048
     Dates: start: 20040114, end: 20050223
  2. BEXTRA [Suspect]
     Indication: INFLAMMATION
  3. BEXTRA [Suspect]
     Indication: MUSCULOSKELETAL PAIN

REACTIONS (1)
  - CEREBROVASCULAR ACCIDENT [None]
